FAERS Safety Report 9246906 (Version 2)
Quarter: 2013Q2

REPORT INFORMATION
  Report Type: Spontaneous
  Country: JP (occurrence: JP)
  Receive Date: 20130422
  Receipt Date: 20130606
  Transmission Date: 20140414
  Serious: Yes (Hospitalization)
  Sender: FDA-Public Use
  Company Number: JP-VIIV HEALTHCARE LIMITED-B0885415A

PATIENT
  Age: 5 Year
  Sex: Male

DRUGS (1)
  1. RETROVIR [Suspect]
     Indication: ANTIVIRAL PROPHYLAXIS
     Route: 048

REACTIONS (5)
  - Apnoeic attack [Recovering/Resolving]
  - C-reactive protein increased [Recovering/Resolving]
  - Impetigo [Recovering/Resolving]
  - Developmental delay [Unknown]
  - Nuclear magnetic resonance imaging brain abnormal [Unknown]
